FAERS Safety Report 8666720 (Version 3)
Quarter: 2013Q4

REPORT INFORMATION
  Report Type: Report from Study
  Country: JP (occurrence: JP)
  Receive Date: 20120716
  Receipt Date: 20131107
  Transmission Date: 20140711
  Serious: Yes (Hospitalization)
  Sender: FDA-Public Use
  Company Number: JP-MSD-1207JPN000769

PATIENT
  Age: 61 Year
  Sex: Female
  Weight: 67 kg

DRUGS (10)
  1. PEGINTRON [Suspect]
     Indication: HEPATITIS C
     Dosage: 1.5 MICROGRAM PER KILOGRAM, QW
     Route: 042
     Dates: start: 20120411, end: 20120606
  2. PEGINTRON [Suspect]
     Dosage: DAILY DOSE UNKNOWN
     Route: 042
     Dates: start: 20120613
  3. TELAPREVIR [Suspect]
     Indication: HEPATITIS C
     Dosage: 1500 MG, QD
     Route: 048
     Dates: start: 20120411, end: 20120606
  4. TELAPREVIR [Suspect]
     Dosage: 750 MG, QD
     Route: 048
     Dates: start: 20120613
  5. REBETOL [Suspect]
     Indication: HEPATITIS C
     Dosage: 600 MG, QD
     Route: 048
     Dates: start: 20120411, end: 20120522
  6. REBETOL [Suspect]
     Dosage: 400 MG, QD
     Route: 048
     Dates: start: 20120523, end: 20120606
  7. BLOPRESS [Concomitant]
     Indication: HYPERTENSION
     Dosage: 8 MG, UNK, MORNING, EVENING
     Route: 048
  8. NORVASC OD [Concomitant]
     Indication: HYPERTENSION
     Dosage: 5 MG, UNK, MORNING
     Route: 048
  9. ALLEGRA [Concomitant]
     Indication: RHINITIS ALLERGIC
     Dosage: 120 MG, UNK
     Route: 048
  10. ZYLORIC [Concomitant]
     Indication: HYPERURICAEMIA
     Dosage: 100 MG, QD
     Dates: start: 20120418

REACTIONS (1)
  - Pyelonephritis acute [Recovered/Resolved]
